FAERS Safety Report 10584918 (Version 4)
Quarter: 2016Q2

REPORT INFORMATION
  Report Type: Report from Study
  Country: US (occurrence: US)
  Receive Date: 20141114
  Receipt Date: 20160617
  Transmission Date: 20160815
  Serious: Yes (Death, Hospitalization)
  Sender: FDA-Public Use
  Company Number: US-ARIAD PHARMACEUTICALS, INC-2014US004002

PATIENT

DRUGS (7)
  1. SEROTONIN [Concomitant]
     Active Substance: SEROTONIN
     Indication: PRODUCT USED FOR UNKNOWN INDICATION
     Dosage: 40 MG, QD
  2. CELEXA [Concomitant]
     Active Substance: CITALOPRAM HYDROBROMIDE
     Indication: PRODUCT USED FOR UNKNOWN INDICATION
     Dosage: 20 MG, QD
  3. CHEMOTHERAPEUTICS [Suspect]
     Active Substance: UNSPECIFIED INGREDIENT
     Indication: CHEMOTHERAPY
  4. RIVAROXABAN [Concomitant]
     Active Substance: RIVAROXABAN
     Indication: PRODUCT USED FOR UNKNOWN INDICATION
     Dosage: 20 MG, QD
  5. COREG [Concomitant]
     Active Substance: CARVEDILOL
     Indication: PRODUCT USED FOR UNKNOWN INDICATION
     Dosage: 25 MG, UNK
  6. ICLUSIG [Suspect]
     Active Substance: PONATINIB
     Indication: CHRONIC MYELOID LEUKAEMIA
     Dosage: 30 MG, QD
     Dates: start: 20140302, end: 20141014
  7. ASPIRIN. [Concomitant]
     Active Substance: ASPIRIN
     Indication: PRODUCT USED FOR UNKNOWN INDICATION
     Dosage: 225 MG, QD

REACTIONS (4)
  - Sepsis [Fatal]
  - Multiple organ dysfunction syndrome [Fatal]
  - Chronic myeloid leukaemia recurrent [Fatal]
  - Septic shock [Unknown]

NARRATIVE: CASE EVENT DATE: 201410
